FAERS Safety Report 16969225 (Version 1)
Quarter: 2019Q4

REPORT INFORMATION
  Report Type: Spontaneous
  Country: US (occurrence: US)
  Receive Date: 20191029
  Receipt Date: 20191029
  Transmission Date: 20200122
  Serious: No
  Sender: FDA-Public Use
  Company Number: US-MYLANLABS-2019M1096410

PATIENT
  Sex: Female

DRUGS (1)
  1. LIDOCAINE PATCH [Suspect]
     Active Substance: LIDOCAINE
     Indication: LIGAMENT SPRAIN
     Dosage: UNK UNK, QD
     Route: 003
     Dates: end: 20191010

REACTIONS (2)
  - Off label use [Not Recovered/Not Resolved]
  - Product adhesion issue [Not Recovered/Not Resolved]
